FAERS Safety Report 7610355-2 (Version None)
Quarter: 2011Q3

REPORT INFORMATION
  Report Type: 
  Country: None (occurrence: None)
  Receive Date: 20110715
  Receipt Date: 20100907
  Transmission Date: 20111222
  Serious: No
  Sender: FDA-Public Use
  Company Number: A0879874A

PATIENT
  Age: 78 Year
  Sex: Male

DRUGS (12)
  1. ASPIRIN [Concomitant]
  2. PLAVIX [Concomitant]
  3. METOPROLOL TARTRATE [Concomitant]
  4. FLOMAX [Concomitant]
  5. CENTRUM SILVER [Concomitant]
  6. SPIRONOLACTONE [Concomitant]
  7. FISH OIL [Concomitant]
  8. FOLIC ACID [Concomitant]
  9. DIGOXIN [Concomitant]
  10. OLUX [Suspect]
     Indication: PSORIASIS
     Dosage: 1APP PER DAY
     Route: 061
     Dates: start: 20080901
  11. AVAPRO [Concomitant]
  12. CRESTOR [Concomitant]

REACTIONS (3)
  - EXPIRED DRUG ADMINISTERED [None]
  - DRUG ADMINISTRATION ERROR [None]
  - DRUG INEFFECTIVE [None]
